FAERS Safety Report 23630851 (Version 1)
Quarter: 2024Q1

REPORT INFORMATION
  Report Type: Spontaneous
  Country: DE (occurrence: DE)
  Receive Date: 20240314
  Receipt Date: 20240314
  Transmission Date: 20240409
  Serious: Yes (Other)
  Sender: FDA-Public Use
  Company Number: DE-CELLTRION INC.-2024DE006036

PATIENT

DRUGS (9)
  1. RITUXIMAB [Suspect]
     Active Substance: RITUXIMAB
     Indication: Immunosuppressant drug therapy
     Dosage: UNK
  2. RITUXIMAB [Suspect]
     Active Substance: RITUXIMAB
     Indication: Chronic lymphocytic leukaemia
     Dosage: SINCE THE START DATE WAS MENTIONED AS 2-6/2015 SO, CONSERVATIVELY 2015 HAS BEEN CAPTURED
     Route: 065
     Dates: start: 201502, end: 201506
  3. FLUDARABINE [Suspect]
     Active Substance: FLUDARABINE PHOSPHATE
     Indication: Lymphadenopathy
     Dosage: SINCE THE START DATE WAS MENTIONED AS 2-6/2015 SO, CONSERVATIVELY 2015 HAS BEEN CAPTURED
     Dates: start: 20150201, end: 20150601
  4. FLUDARABINE [Suspect]
     Active Substance: FLUDARABINE PHOSPHATE
     Indication: Immunosuppressant drug therapy
     Dosage: UNK
  5. CYCLOPHOSPHAMIDE [Suspect]
     Active Substance: CYCLOPHOSPHAMIDE
     Indication: Lymphadenopathy
     Dosage: SINCE THE START DATE WAS MENTIONED AS 2-6/2015 SO, CONSERVATIVELY 2015 HAS BEEN CAPTURED
     Dates: start: 201502, end: 201506
  6. CYCLOPHOSPHAMIDE [Suspect]
     Active Substance: CYCLOPHOSPHAMIDE
     Indication: Chronic lymphocytic leukaemia
     Dosage: SINCE THE START DATE WAS MENTIONED AS 2-6/2015 SO, CONSERVATIVELY 2015 HAS BEEN CAPTURED
     Route: 065
     Dates: start: 201502, end: 20150601
  7. RITUXIMAB [Suspect]
     Active Substance: RITUXIMAB
     Indication: Lymphadenopathy
     Dosage: SINCE THE START DATE WAS MENTIONED AS 2-6/2015 SO, CONSERVATIVELY 2015 HAS BEEN CAPTURED
     Route: 065
     Dates: start: 201502, end: 201506
  8. CYCLOPHOSPHAMIDE [Suspect]
     Active Substance: CYCLOPHOSPHAMIDE
     Indication: Immunosuppressant drug therapy
  9. FLUDARABINE [Suspect]
     Active Substance: FLUDARABINE PHOSPHATE
     Indication: Chronic lymphocytic leukaemia
     Dosage: SINCE THE START DATE WAS MENTIONED AS 2-6/2015 SO, CONSERVATIVELY 2015 HAS BEEN CAPTURED
     Route: 065
     Dates: start: 201502, end: 201506

REACTIONS (3)
  - Liver function test abnormal [Recovered/Resolved]
  - Hepatitis E [Recovering/Resolving]
  - Intentional product use issue [Unknown]

NARRATIVE: CASE EVENT DATE: 20160601
